FAERS Safety Report 13118828 (Version 3)
Quarter: 2017Q1

REPORT INFORMATION
  Report Type: Spontaneous
  Country: US (occurrence: US)
  Receive Date: 20170116
  Receipt Date: 20170301
  Transmission Date: 20170428
  Serious: Yes (Hospitalization, Other)
  Sender: FDA-Public Use
  Company Number: US-BRISTOL-MYERS SQUIBB COMPANY-BMS-2017-001613

PATIENT
  Age: 83 Year
  Sex: Male
  Weight: 74.3 kg

DRUGS (2)
  1. COUMADIN [Suspect]
     Active Substance: WARFARIN SODIUM
     Indication: ATRIAL FIBRILLATION
     Dosage: 2 MG, UNK
     Route: 048
     Dates: start: 2014, end: 2015
  2. ELIQUIS [Suspect]
     Active Substance: APIXABAN
     Indication: CEREBROVASCULAR ACCIDENT PROPHYLAXIS
     Dosage: 5 MG, BID
     Route: 065

REACTIONS (12)
  - Haemorrhage [Unknown]
  - Contraindicated product administered [Unknown]
  - Dyspnoea [Unknown]
  - Brain injury [Unknown]
  - Hypoacusis [Unknown]
  - Transfusion [Unknown]
  - Eating disorder [Unknown]
  - Joint swelling [Unknown]
  - Gastrointestinal haemorrhage [Recovering/Resolving]
  - Cerebrovascular accident [Unknown]
  - Fall [Unknown]
  - Vision blurred [Unknown]

NARRATIVE: CASE EVENT DATE: 201503
